FAERS Safety Report 9748683 (Version 2)
Quarter: 2014Q1

REPORT INFORMATION
  Report Type: Spontaneous
  Country: US (occurrence: US)
  Receive Date: 20131212
  Receipt Date: 20140122
  Transmission Date: 20141002
  Serious: Yes (Other)
  Sender: FDA-Public Use
  Company Number: US-ASTRAZENECA-2013SE90188

PATIENT
  Sex: Female

DRUGS (1)
  1. CRESTOR [Suspect]
     Route: 048

REACTIONS (14)
  - Spinal column stenosis [Unknown]
  - Ovarian cyst [Unknown]
  - Muscle strain [Unknown]
  - Sleep disorder due to a general medical condition [Unknown]
  - Pain [Unknown]
  - Gait disturbance [Unknown]
  - Blood cholesterol abnormal [Unknown]
  - Hallucination [Unknown]
  - Dementia Alzheimer^s type [Unknown]
  - Hypoaesthesia [Unknown]
  - Muscle spasms [Unknown]
  - Memory impairment [Unknown]
  - Asthenia [Unknown]
  - Muscle spasms [Unknown]
